FAERS Safety Report 25766040 (Version 1)
Quarter: 2025Q3

REPORT INFORMATION
  Report Type: Spontaneous
  Country: US (occurrence: US)
  Receive Date: 20250905
  Receipt Date: 20250905
  Transmission Date: 20251020
  Serious: No
  Sender: DOMPE FARMACEUTICI
  Company Number: US-FARMAPROD-202407-2750

PATIENT
  Sex: Female

DRUGS (10)
  1. OXERVATE [Suspect]
     Active Substance: CENEGERMIN-BKBJ
     Indication: Neurotrophic keratopathy
     Route: 047
     Dates: start: 20240722
  2. FAMOTIDINE [Concomitant]
     Active Substance: FAMOTIDINE
  3. ADVIL [Concomitant]
     Active Substance: IBUPROFEN
  4. ARTIFICIAL TEARS [Concomitant]
  5. UNSPECIFIED INGREDIENT [Concomitant]
     Active Substance: UNSPECIFIED INGREDIENT
  6. DEXAMETHASONE [Concomitant]
     Active Substance: DEXAMETHASONE
  7. MOXIFLOXACIN [Concomitant]
     Active Substance: MOXIFLOXACIN
  8. SYNTHROID [Concomitant]
     Active Substance: LEVOTHYROXINE SODIUM
  9. ERYTHROMYCIN [Concomitant]
     Active Substance: ERYTHROMYCIN
  10. METOPROLOL TARTRATE [Concomitant]
     Active Substance: METOPROLOL TARTRATE

REACTIONS (1)
  - Therapy interrupted [Unknown]
